FAERS Safety Report 6155067-X (Version None)
Quarter: 2009Q2

REPORT INFORMATION
  Report Type: 
  Country: None (occurrence: None)
  Receive Date: 20090410
  Receipt Date: 20090401
  Transmission Date: 20091009
  Serious: Yes (Death)
  Sender: FDA-Public Use
  Company Number: 005434

PATIENT
  Age: 73 Year
  Sex: Female
  Weight: 46 kg

DRUGS (14)
  1. PLETAL [Suspect]
     Indication: VENOUS THROMBOSIS LIMB
     Dosage: 100 MG, DAILY DOSE ORAL ; 200 MG, DAILY DOSE, ORAL
     Route: 048
     Dates: start: 20081021
  2. PLETAL [Suspect]
     Indication: VENOUS THROMBOSIS LIMB
     Dosage: 100 MG, DAILY DOSE ORAL ; 200 MG, DAILY DOSE, ORAL
     Route: 048
     Dates: start: 20081027
  3. RHEUMATREX [Suspect]
     Indication: RHEUMATOID ARTHRITIS
     Dosage: 4 MG, QW ORAL
     Route: 048
     Dates: end: 20081112
  4. ACTEMRA (TOCILIZUMAB (GENETICAL RECOMBINATION)) INJECTION [Suspect]
     Indication: RHEUMATOID ARTHRITIS
     Dosage: SEE IMAGE
     Route: 041
     Dates: start: 20080516, end: 20080516
  5. ACTEMRA (TOCILIZUMAB (GENETICAL RECOMBINATION)) INJECTION [Suspect]
     Indication: RHEUMATOID ARTHRITIS
     Dosage: SEE IMAGE
     Route: 041
     Dates: start: 20080610, end: 20080610
  6. ACTEMRA (TOCILIZUMAB (GENETICAL RECOMBINATION)) INJECTION [Suspect]
     Indication: RHEUMATOID ARTHRITIS
     Dosage: SEE IMAGE
     Route: 041
     Dates: start: 20080709, end: 20080709
  7. ACTEMRA (TOCILIZUMAB (GENETICAL RECOMBINATION)) INJECTION [Suspect]
     Indication: RHEUMATOID ARTHRITIS
     Dosage: SEE IMAGE
     Route: 041
     Dates: start: 20080806, end: 20080806
  8. ACTEMRA (TOCILIZUMAB (GENETICAL RECOMBINATION)) INJECTION [Suspect]
     Indication: RHEUMATOID ARTHRITIS
     Dosage: SEE IMAGE
     Route: 041
     Dates: start: 20080903, end: 20080903
  9. ACTEMRA (TOCILIZUMAB (GENETICAL RECOMBINATION)) INJECTION [Suspect]
     Indication: RHEUMATOID ARTHRITIS
     Dosage: SEE IMAGE
     Route: 041
     Dates: start: 20081001, end: 20081001
  10. WARFARIN SODIUM [Suspect]
     Indication: VENOUS THROMBOSIS LIMB
     Dosage: 1 MG, DAILY DOSE; ORAL ; 2 MG, DAILY DOSE; ORAL
     Route: 048
     Dates: start: 20081010
  11. WARFARIN SODIUM [Suspect]
     Indication: VENOUS THROMBOSIS LIMB
     Dosage: 1 MG, DAILY DOSE; ORAL ; 2 MG, DAILY DOSE; ORAL
     Route: 048
     Dates: start: 20081014
  12. PREDNISOLONE [Concomitant]
  13. BONALON 35MG (ALENDRONATE SODIUM) TABLET [Concomitant]
  14. OMEPRAZOLE [Concomitant]

REACTIONS (12)
  - BLOOD CHOLESTEROL INCREASED [None]
  - BLOOD TRIGLYCERIDES INCREASED [None]
  - CONDITION AGGRAVATED [None]
  - CONTUSION [None]
  - DRUG INEFFECTIVE [None]
  - FALL [None]
  - INTERSTITIAL LUNG DISEASE [None]
  - OEDEMA PERIPHERAL [None]
  - PAIN [None]
  - SPUTUM RETENTION [None]
  - STAPHYLOCOCCAL INFECTION [None]
  - VENOUS THROMBOSIS LIMB [None]
